FAERS Safety Report 9392413 (Version 2)
Quarter: 2013Q3

REPORT INFORMATION
  Report Type: Spontaneous
  Country: FR (occurrence: FR)
  Receive Date: 20130710
  Receipt Date: 20130816
  Transmission Date: 20140515
  Serious: Yes (Hospitalization)
  Sender: FDA-Public Use
  Company Number: FR-ACCORD-018500

PATIENT
  Age: 72 Year
  Sex: Female

DRUGS (15)
  1. GEMCITABINE [Suspect]
     Indication: CHOLANGIOCARCINOMA
     Dosage: 1 IN 1 CYCLE
     Route: 042
     Dates: start: 20130404
  2. OXALIPLATIN [Suspect]
     Indication: CHOLANGIOCARCINOMA
     Dosage: 1 IN 1 CYCLE
     Route: 042
     Dates: start: 20130404
  3. PARACETAMOL [Suspect]
     Indication: PAIN
     Dosage: 4 GM (1 G, 4 IN A DAY AS NEEDED)
     Route: 048
     Dates: start: 201302, end: 20130421
  4. PROFENID [Suspect]
     Indication: PAIN
     Route: 048
     Dates: start: 20130422, end: 20130428
  5. MORPHINE [Suspect]
     Indication: CANCER PAIN
     Route: 042
     Dates: start: 20130122, end: 20130428
  6. ACUPAN [Suspect]
     Indication: PAIN
     Dosage: 4 DF (1 DF, 4 IN 1 DAY AS NEEDED)
     Route: 042
     Dates: start: 20130422, end: 20130428
  7. OXYCONTIN LP [Suspect]
     Indication: ANXIETY
     Dosage: PROLONGED-RELEASE FILM-COATED TABLET,2 DF (40 MG) (1 DF, 2 IN 1 DAY
     Route: 048
     Dates: start: 20130418
  8. OXYNORM [Suspect]
     Indication: CANCER PAIN
     Dosage: 15 MG EVERY 4 HOURS AS NEEDED
     Route: 048
     Dates: start: 201303
  9. DOLIPRANE [Suspect]
     Indication: PAIN
     Dosage: EFFERVESCENT SCORED TABLET, 4 DF (1 DF, 4 IN 1 DAY)
     Route: 048
     Dates: start: 20130422, end: 20130428
  10. INNOHEP [Suspect]
     Indication: PULMONARY EMBOLISM
     Dosage: THERAPY DURATION: UNKNOWN
     Route: 058
     Dates: start: 20130421
  11. OMEPRAZOLE [Concomitant]
  12. STRESAM [Concomitant]
     Route: 048
  13. INEXIUM [Concomitant]
     Route: 048
  14. ORBENINE [Concomitant]
     Indication: DEVICE RELATED INFECTION
     Dosage: POWDER AND SOLUTION FOR SOLUTION INJECTION.?INTRAVENOUS ROUTE FOR CATHETER INFECTION
     Route: 042
     Dates: start: 20130404, end: 20130409
  15. LERCAN [Concomitant]
     Route: 048

REACTIONS (4)
  - Hepatitis acute [Recovered/Resolved]
  - Hepatocellular injury [Recovered/Resolved]
  - Cholestasis [Recovered/Resolved with Sequelae]
  - Off label use [Unknown]
